FAERS Safety Report 4723701-4 (Version None)
Quarter: 2005Q3

REPORT INFORMATION
  Report Type: 
  Country: None (occurrence: None)
  Receive Date: 20050725
  Receipt Date: 20031205
  Transmission Date: 20060218
  Serious: Yes (Hospitalization)
  Sender: FDA-Public Use
  Company Number: US-ABBOTT-03P-163-0244179-00

PATIENT
  Sex: Female
  Weight: 109 kg

DRUGS (8)
  1. SYNTHROID [Suspect]
     Indication: HYPOTHYROIDISM
     Route: 048
     Dates: start: 20021201, end: 20031101
  2. SYNTHROID [Suspect]
     Route: 048
     Dates: start: 20031125
  3. PREDNISONE [Concomitant]
     Route: 048
  4. GABAPENTIN [Concomitant]
  5. ATORVASTATIN CALCIUM [Concomitant]
  6. LANSOPRAZOLE [Concomitant]
     Route: 048
  7. PRAMARIN [Concomitant]
  8. METHADONE HCL [Concomitant]
     Indication: PAIN

REACTIONS (11)
  - BLOOD ELECTROLYTES INCREASED [None]
  - BLOOD PRESSURE INCREASED [None]
  - COLD SWEAT [None]
  - DIFFICULTY IN WALKING [None]
  - DRUG INEFFECTIVE [None]
  - DYSPHAGIA [None]
  - FEELING ABNORMAL [None]
  - HYPOTHYROIDISM [None]
  - SOMNOLENCE [None]
  - TREMOR [None]
  - WHITE BLOOD CELL COUNT INCREASED [None]
